FAERS Safety Report 21772510 (Version 1)
Quarter: 2022Q4

REPORT INFORMATION
  Report Type: Spontaneous
  Country: FR (occurrence: FR)
  Receive Date: 20221223
  Receipt Date: 20221223
  Transmission Date: 20230113
  Serious: Yes (Hospitalization)
  Sender: FDA-Public Use
  Company Number: None

PATIENT
  Age: 19 Year
  Sex: Female
  Weight: 60 kg

DRUGS (6)
  1. ARIPIPRAZOLE [Suspect]
     Active Substance: ARIPIPRAZOLE
     Indication: Mental disorder
     Dosage: 10 MILLIGRAM DAILY; 10MG/DAY, DURATION : 47 DAYS
     Route: 065
     Dates: start: 20220521, end: 20220707
  2. QUETIAPINE [Suspect]
     Active Substance: QUETIAPINE
     Indication: Mental disorder
     Dosage: 400 MILLIGRAM DAILY; 400MG/DAY, DURATION : 47 DAYS
     Route: 065
     Dates: start: 20220523, end: 20220707
  3. PAROXETINE HYDROCHLORIDE HEMIHYDRATE [Suspect]
     Active Substance: PAROXETINE HYDROCHLORIDE HEMIHYDRATE
     Indication: Depression
     Dosage: 20 MILLIGRAM DAILY; 20MG/DAY , DURATION : 68 DAYS
     Route: 065
     Dates: start: 20220514, end: 20220721
  4. MIRTAZAPINE [Suspect]
     Active Substance: MIRTAZAPINE
     Indication: Depression
     Dosage: 15 MILLIGRAM DAILY; 15MG/DAY, DURATION : 62 DAYS
     Route: 065
     Dates: start: 20220520, end: 20220721
  5. CYAMEMAZINE [Suspect]
     Active Substance: CYAMEMAZINE
     Indication: Mental disorder
     Dosage: 25 MILLIGRAM DAILY; 25MG/DAY, DURATION : 57 DAYS
     Route: 065
     Dates: start: 20220511, end: 20220707
  6. CARBAMAZEPINE [Suspect]
     Active Substance: CARBAMAZEPINE
     Indication: Mental disorder
     Dosage: 200 MILLIGRAM DAILY; 200MG/DAY, DURATION : 23 DAYS
     Route: 065
     Dates: start: 20220614, end: 20220707

REACTIONS (1)
  - Drug reaction with eosinophilia and systemic symptoms [Recovered/Resolved]

NARRATIVE: CASE EVENT DATE: 20220705
